FAERS Safety Report 20900148 (Version 1)
Quarter: 2022Q2

REPORT INFORMATION
  Report Type: Spontaneous
  Country: US (occurrence: US)
  Receive Date: 20220601
  Receipt Date: 20220601
  Transmission Date: 20220721
  Serious: No
  Sender: FDA-Public Use
  Company Number: US-LUPIN PHARMACEUTICALS INC.-2022-07781

PATIENT
  Age: 50 Year
  Sex: Female

DRUGS (8)
  1. DESVENLAFAXINE [Suspect]
     Active Substance: DESVENLAFAXINE
     Indication: Schizoaffective disorder
     Dosage: UNK
     Route: 065
  2. DESVENLAFAXINE [Suspect]
     Active Substance: DESVENLAFAXINE
     Dosage: UNK (DOSE DECREASED) (TAPERED DOWN OVER A 4-WEEK PERIOD)
     Route: 065
  3. TIZANIDINE [Suspect]
     Active Substance: TIZANIDINE
     Indication: Product used for unknown indication
     Dosage: UNK
     Route: 065
  4. TIZANIDINE [Suspect]
     Active Substance: TIZANIDINE
     Dosage: UNK (DOSE DECREASED) (TAPERED DOWN OVER A 4-WEEK PERIOD)
     Route: 065
  5. TYLENOL [Suspect]
     Active Substance: ACETAMINOPHEN
     Indication: Product used for unknown indication
     Dosage: UNK
     Route: 065
  6. TYLENOL [Suspect]
     Active Substance: ACETAMINOPHEN
     Dosage: UNK (DOSE DECREASED) (TAPERED DOWN OVER A 4-WEEK PERIOD)
     Route: 065
  7. BACLOFEN [Suspect]
     Active Substance: BACLOFEN
     Indication: Product used for unknown indication
     Dosage: UNK
     Route: 065
  8. BACLOFEN [Suspect]
     Active Substance: BACLOFEN
     Dosage: UNK (DOSE DECREASED) (TAPERED DOWN OVER A 4-WEEK PERIOD)
     Route: 065

REACTIONS (1)
  - False positive investigation result [Recovered/Resolved]
